FAERS Safety Report 6181866-4 (Version None)
Quarter: 2009Q2

REPORT INFORMATION
  Report Type: 
  Country: None (occurrence: None)
  Receive Date: 20090504
  Receipt Date: 20090423
  Transmission Date: 20091009
  Serious: Yes (Hospitalization)
  Sender: FDA-Public Use
  Company Number: 09IT000999

PATIENT
  Age: 5 Year
  Sex: Female
  Weight: 19.4 kg

DRUGS (4)
  1. ACETAMINOPHEN [Suspect]
     Indication: PYREXIA
     Dosage: 11 MG/KG, 2 DOSES OVER 5 HOURS, ORAL
     Route: 048
  2. IBUPROFEN [Suspect]
     Indication: PYREXIA
     Dosage: 5 MG/KG, Q 8 HOURS, 3 TOTAL DOSES, ORAL
     Route: 048
  3. DIAZEPAM [Concomitant]
  4. ELECTROLYTE SOLUTIONS (ORAL ELECTROLYTE SOLUTION) [Concomitant]

REACTIONS (7)
  - DRUG TOXICITY [None]
  - HEPATIC FAILURE [None]
  - HEPATITIS CHOLESTATIC [None]
  - HYPERTENSION [None]
  - KIDNEY ENLARGEMENT [None]
  - PLATELET COUNT INCREASED [None]
  - RENAL FAILURE [None]
